FAERS Safety Report 7003498-8 (Version None)
Quarter: 2010Q3

REPORT INFORMATION
  Report Type: 
  Country: None (occurrence: None)
  Receive Date: 20100916
  Receipt Date: 20100902
  Transmission Date: 20110219
  Serious: Yes (Other)
  Sender: FDA-Public Use
  Company Number: 018519

PATIENT
  Sex: Male
  Weight: 44 kg

DRUGS (3)
  1. EQUASYM (EQUASYM XL) [Suspect]
     Indication: ATTENTION DEFICIT/HYPERACTIVITY DISORDER
     Dosage: (20 MG QD ORAL), (30 MG QD ORAL), (40 MG QD ORAL)
     Route: 048
     Dates: start: 20100527, end: 20100613
  2. EQUASYM (EQUASYM XL) [Suspect]
     Indication: ATTENTION DEFICIT/HYPERACTIVITY DISORDER
     Dosage: (20 MG QD ORAL), (30 MG QD ORAL), (40 MG QD ORAL)
     Route: 048
     Dates: start: 20100614, end: 20100620
  3. EQUASYM (EQUASYM XL) [Suspect]
     Indication: ATTENTION DEFICIT/HYPERACTIVITY DISORDER
     Dosage: (20 MG QD ORAL), (30 MG QD ORAL), (40 MG QD ORAL)
     Route: 048
     Dates: start: 20100621, end: 20100624

REACTIONS (4)
  - ALANINE AMINOTRANSFERASE INCREASED [None]
  - ASPARTATE AMINOTRANSFERASE INCREASED [None]
  - BLOOD CREATINE PHOSPHOKINASE INCREASED [None]
  - MITOCHONDRIAL MYOPATHY [None]
